FAERS Safety Report 24071166 (Version 1)
Quarter: 2024Q3

REPORT INFORMATION
  Report Type: Report from Study
  Country: DE (occurrence: DE)
  Receive Date: 20240710
  Receipt Date: 20240710
  Transmission Date: 20241016
  Serious: No
  Sender: ROCHE
  Company Number: DE-ROCHE-3374951

PATIENT
  Age: 31 Year
  Sex: Male
  Weight: 60.0 kg

DRUGS (1)
  1. EVRYSDI [Suspect]
     Active Substance: RISDIPLAM
     Indication: Spinal muscular atrophy
     Dosage: ON 24/MAR/2023, 26/APR/2024, HE RECEIVED MOST RECENT DOSE OF RISDIPLAM
     Route: 048
     Dates: start: 20220314

REACTIONS (2)
  - Influenza [Recovered/Resolved]
  - Headache [Recovered/Resolved]

NARRATIVE: CASE EVENT DATE: 20230301
